FAERS Safety Report 8730527 (Version 2)
Quarter: 2013Q4

REPORT INFORMATION
  Report Type: Spontaneous
  Country: US (occurrence: US)
  Receive Date: 20120817
  Receipt Date: 20131031
  Transmission Date: 20140711
  Serious: No
  Sender: FDA-Public Use
  Company Number: US-009507513-2012SP033487

PATIENT
  Age: 52 Year
  Sex: Female

DRUGS (2)
  1. CLARITIN [Suspect]
     Indication: PRURITUS
     Dosage: 10 MG, UNKNOWN
     Route: 048
     Dates: start: 201205
  2. CLARITIN [Suspect]
     Indication: MEDICAL OBSERVATION

REACTIONS (1)
  - Therapeutic product ineffective [Unknown]
